FAERS Safety Report 5682277-8 (Version None)
Quarter: 2008Q1

REPORT INFORMATION
  Report Type: 
  Country: None (occurrence: None)
  Receive Date: 20080327
  Receipt Date: 20080319
  Transmission Date: 20080703
  Serious: Yes (Death, Other)
  Sender: FDA-Public Use
  Company Number: PHHY2008JP03589

PATIENT
  Age: 12 Year
  Sex: Male

DRUGS (7)
  1. CYCLOSPORINE [Suspect]
     Indication: PROPHYLAXIS AGAINST GRAFT VERSUS HOST DISEASE
     Route: 065
  2. METHYLPREDNISOLONE [Concomitant]
     Indication: PROPHYLAXIS AGAINST GRAFT VERSUS HOST DISEASE
     Dosage: 80 MG/ DAY
  3. METHOTREXATE [Concomitant]
     Indication: PROPHYLAXIS AGAINST GRAFT VERSUS HOST DISEASE
  4. TACROLIMUS [Concomitant]
     Indication: PROPHYLAXIS AGAINST GRAFT VERSUS HOST DISEASE
  5. MYCOPHENOLATE MOFETIL [Concomitant]
  6. AZATHIOPRINE [Concomitant]
  7. CYCLOPHOSPHAMIDE [Concomitant]

REACTIONS (6)
  - BRONCHOPULMONARY ASPERGILLOSIS [None]
  - GRAFT VERSUS HOST DISEASE IN LUNG [None]
  - OBLITERATIVE BRONCHIOLITIS [None]
  - PANCYTOPENIA [None]
  - RASH [None]
  - THROMBOTIC MICROANGIOPATHY [None]
